FAERS Safety Report 10563941 (Version 2)
Quarter: 2015Q1

REPORT INFORMATION
  Report Type: Spontaneous
  Country: US (occurrence: US)
  Receive Date: 20141104
  Receipt Date: 20150130
  Transmission Date: 20150720
  Serious: No
  Sender: FDA-Public Use
  Company Number: US-GILEAD-2014-0120989

PATIENT
  Age: 74 Year
  Sex: Female

DRUGS (22)
  1. FLONASE                            /00908302/ [Concomitant]
  2. POTASSIUM [Concomitant]
     Active Substance: POTASSIUM
  3. LETAIRIS [Suspect]
     Active Substance: AMBRISENTAN
     Dates: start: 20140917
  4. GABAPENTIN. [Concomitant]
     Active Substance: GABAPENTIN
  5. LYSINE [Concomitant]
     Active Substance: LYSINE
  6. LETAIRIS [Suspect]
     Active Substance: AMBRISENTAN
     Indication: COR PULMONALE CHRONIC
     Dosage: 10 MG, QD
     Route: 065
  7. LETAIRIS [Suspect]
     Active Substance: AMBRISENTAN
     Dosage: 5 MG, UNK
     Route: 065
     Dates: start: 20140916
  8. OMEGA 3                            /01334101/ [Concomitant]
     Active Substance: OMEGA-3 FATTY ACIDS
  9. SILDENAFIL. [Concomitant]
     Active Substance: SILDENAFIL
  10. FUROSEMIDE. [Concomitant]
     Active Substance: FUROSEMIDE
  11. MULTIVITAMIN WITH FLUORIDE [Concomitant]
     Active Substance: .ALPHA.-TOCOPHEROL\.ALPHA.-TOCOPHEROL ACETATE\.ALPHA.-TOCOPHEROL ACETATE, DL-\ASCORBIC ACID\CHOLECALCIFEROL\COBALAMIN\CYANOCOBALAMIN\FLUORIDE ION\FOLIC ACID\NIACIN\NIACINAMIDE\PYRIDOXINE\PYRIDOXINE HYDROCHLORIDE\RIBOFLAVIN\SODIUM ASCORBATE\SODIUM FLUORIDE\THIAMINE\THIAMINE MONONITRATE\VITAMIN A\VITA
  12. LYRICA [Concomitant]
     Active Substance: PREGABALIN
  13. CALCIUM [Concomitant]
     Active Substance: CALCIUM
  14. QVAR [Concomitant]
     Active Substance: BECLOMETHASONE DIPROPIONATE
  15. HYDROCODONE [Concomitant]
     Active Substance: HYDROCODONE
  16. ALBUTEROL                          /00139501/ [Concomitant]
     Active Substance: ALBUTEROL
  17. VITAMIN D [Concomitant]
     Active Substance: CHOLECALCIFEROL
  18. VITAMIN K2                         /00357701/ [Concomitant]
  19. UBIQUINOL [Concomitant]
  20. QUININE SULF [Concomitant]
  21. WARFARIN [Concomitant]
     Active Substance: WARFARIN
  22. MAGNESIUM [Concomitant]
     Active Substance: MAGNESIUM

REACTIONS (1)
  - Accidental overdose [Unknown]
